FAERS Safety Report 5913997-5 (Version None)
Quarter: 2008Q4

REPORT INFORMATION
  Report Type: 
  Country: None (occurrence: None)
  Receive Date: 20081009
  Receipt Date: 20081003
  Transmission Date: 20090506
  Serious: Yes (Death)
  Sender: FDA-Public Use
  Company Number: JP-BAYER-200811832BYL

PATIENT
  Age: 60 Year
  Sex: Male
  Weight: 90 kg

DRUGS (7)
  1. NEXAVAR [Suspect]
     Indication: RENAL CELL CARCINOMA STAGE IV
     Dosage: TOTAL DAILY DOSE: 400 MG  UNIT DOSE: 200 MG
     Route: 048
     Dates: start: 20080527
  2. MICARDIS [Concomitant]
     Route: 048
     Dates: start: 20080526, end: 20080713
  3. AMLODIPINE [Concomitant]
     Route: 048
     Dates: start: 20080526, end: 20080713
  4. GASTER D [Concomitant]
     Route: 048
     Dates: start: 20080526, end: 20080713
  5. ALOSITOL [Concomitant]
     Dates: start: 20030718, end: 20080713
  6. HARNAL [Concomitant]
     Route: 048
     Dates: start: 20070706, end: 20080713
  7. PURSENNID [Concomitant]
     Indication: DRUG USE FOR UNKNOWN INDICATION
     Route: 048
     Dates: start: 20080627, end: 20080713

REACTIONS (2)
  - GASTROINTESTINAL HAEMORRHAGE [None]
  - SHOCK HAEMORRHAGIC [None]
